FAERS Safety Report 9559235 (Version 2)
Quarter: 2013Q4

REPORT INFORMATION
  Report Type: Spontaneous
  Country: GB (occurrence: GB)
  Receive Date: 20130927
  Receipt Date: 20131115
  Transmission Date: 20140711
  Serious: Yes (Other)
  Sender: FDA-Public Use
  Company Number: PHFR2013GB005437

PATIENT
  Age: 53 Year
  Sex: Male

DRUGS (5)
  1. CLOZARIL [Suspect]
     Indication: SCHIZOPHRENIA
     Route: 048
     Dates: start: 20010701
  2. CLOZARIL [Suspect]
     Dosage: 225 MG
     Route: 048
  3. CLOZARIL [Suspect]
     Dosage: 300 MG
     Route: 048
  4. AMINOPHYLLINE [Suspect]
     Dosage: 300 MG
     Route: 048
  5. DULOXETINE [Suspect]
     Dosage: 60 MG
     Route: 048

REACTIONS (2)
  - Anaemia [Recovered/Resolved]
  - White blood cell count increased [Recovered/Resolved]
